FAERS Safety Report 5618920-9 (Version None)
Quarter: 2008Q1

REPORT INFORMATION
  Report Type: 
  Country: None (occurrence: None)
  Receive Date: 20080207
  Receipt Date: 20080201
  Transmission Date: 20080703
  Serious: Yes (Death)
  Sender: FDA-Public Use
  Company Number: US-SANOFI-SYNTHELABO-A03200800374

PATIENT
  Age: 70 Year
  Sex: Female

DRUGS (2)
  1. ELOXATIN [Suspect]
     Indication: RECTAL CANCER
     Dosage: UNK
     Route: 042
  2. XELODA [Suspect]
     Indication: RECTAL CANCER
     Dosage: UNK
     Route: 048

REACTIONS (2)
  - DEATH [None]
  - THROMBOSIS MESENTERIC VESSEL [None]
